FAERS Safety Report 14177985 (Version 4)
Quarter: 2019Q1

REPORT INFORMATION
  Report Type: Spontaneous
  Country: US (occurrence: US)
  Receive Date: 20171110
  Receipt Date: 20190317
  Transmission Date: 20190417
  Serious: Yes (Other)
  Sender: FDA-Public Use
  Company Number: US-DRREDDYS-USA/USA/17/0093963

PATIENT
  Age: 50 Year
  Sex: Male
  Weight: 100.45 kg

DRUGS (1)
  1. FONDAPARINUX SODIUM. [Suspect]
     Active Substance: FONDAPARINUX SODIUM
     Indication: COAGULOPATHY
     Route: 065

REACTIONS (7)
  - Loss of consciousness [Unknown]
  - Feeling abnormal [Unknown]
  - Product physical issue [Unknown]
  - Skin discolouration [Unknown]
  - Muscle spasms [Not Recovered/Not Resolved]
  - Vomiting [Unknown]
  - Product storage error [Unknown]
